FAERS Safety Report 8906334 (Version 1)
Quarter: 2012Q4

REPORT INFORMATION
  Report Type: Spontaneous
  Country: US (occurrence: None)
  Receive Date: 20121112
  Receipt Date: 20121112
  Transmission Date: 20130627
  Serious: Yes (Other)
  Sender: FDA-Public Use
  Company Number: None

PATIENT
  Age: 61 Year
  Sex: Male
  Weight: 72.58 kg

DRUGS (2)
  1. ATIVAN [Suspect]
     Indication: ALCOHOLIC WITHDRAWAL SYMPTOMS
  2. CLONIDINE [Suspect]
     Indication: HYPERTENSION

REACTIONS (1)
  - Hypotension [None]
